FAERS Safety Report 4443859-4 (Version None)
Quarter: 2004Q3

REPORT INFORMATION
  Report Type: 
  Country: None (occurrence: None)
  Receive Date: 20040802
  Receipt Date: 20040512
  Transmission Date: 20050211
  Serious: No
  Sender: FDA-Public Use
  Company Number: 2004-117834-NL

PATIENT
  Age: 22 Year
  Sex: Female
  Weight: 56.8 kg

DRUGS (4)
  1. NUVARING [Suspect]
     Indication: CONTRACEPTION
     Dosage: DR DAILY VAGINAL
     Route: 067
     Dates: start: 20020101, end: 20040301
  2. NUVARING [Suspect]
     Indication: MENSTRUATION IRREGULAR
     Dosage: DR DAILY VAGINAL
     Route: 067
     Dates: start: 20020101, end: 20040301
  3. NUVARING [Suspect]
     Indication: CONTRACEPTION
     Dosage: DF DAILY VAGINAL
     Route: 067
     Dates: start: 20040422
  4. NUVARING [Suspect]
     Indication: MENSTRUATION IRREGULAR
     Dosage: DF DAILY VAGINAL
     Route: 067
     Dates: start: 20040422

REACTIONS (3)
  - ERYTHEMA [None]
  - HYPOTRICHOSIS [None]
  - PAIN OF SKIN [None]
